FAERS Safety Report 9056600 (Version 2)
Quarter: 2013Q1

REPORT INFORMATION
  Report Type: Spontaneous
  Country: DE (occurrence: DE)
  Receive Date: 20130204
  Receipt Date: 20130208
  Transmission Date: 20140127
  Serious: Yes (Other)
  Sender: FDA-Public Use
  Company Number: CHPA2013DE001992

PATIENT
  Age: 60 Year
  Sex: Female

DRUGS (6)
  1. NICOTINELL [Suspect]
     Indication: SMOKING CESSATION THERAPY
     Dosage: UNK UNK, PRN
     Route: 048
     Dates: start: 1999, end: 20130126
  2. NICOTINELL [Suspect]
     Dosage: UNK, OCCASIONALLY
     Dates: start: 1999
  3. SPIRIVA [Concomitant]
     Dosage: UNK, UNK
  4. SYMBICORT [Concomitant]
     Dosage: UNK, UNK
  5. BEROTEC [Concomitant]
     Dosage: UNK, UNK
  6. PREDNISOLON [Concomitant]
     Dosage: UNK, UNK

REACTIONS (3)
  - Lung disorder [Not Recovered/Not Resolved]
  - Urine cotinine test positive [Not Recovered/Not Resolved]
  - Drug abuse [None]
